FAERS Safety Report 22640468 (Version 1)
Quarter: 2023Q2

REPORT INFORMATION
  Report Type: Spontaneous
  Country: DE (occurrence: DE)
  Receive Date: 20230626
  Receipt Date: 20230626
  Transmission Date: 20230721
  Serious: Yes (Other)
  Sender: FDA-Public Use
  Company Number: DE-002147023-NVSC2023DE143193

PATIENT
  Age: 80 Year
  Sex: Female

DRUGS (2)
  1. LETROZOLE [Suspect]
     Active Substance: LETROZOLE
     Indication: Endometrial stromal sarcoma
     Dosage: UNK
     Route: 065
  2. LETROZOLE [Suspect]
     Active Substance: LETROZOLE
     Indication: Hormone replacement therapy

REACTIONS (4)
  - Endometrial stromal sarcoma [Unknown]
  - Malignant neoplasm progression [Unknown]
  - Endometrial sarcoma metastatic [Unknown]
  - Product use in unapproved indication [Unknown]
